FAERS Safety Report 5773100-1 (Version None)
Quarter: 2008Q2

REPORT INFORMATION
  Report Type: 
  Country: None (occurrence: None)
  Receive Date: 20080602
  Receipt Date: 20080521
  Transmission Date: 20081010
  Serious: Yes (Other)
  Sender: FDA-Public Use
  Company Number: AEUSA200700145

PATIENT
  Age: 38 Year
  Sex: Female
  Weight: 100 kg

DRUGS (18)
  1. GAMUNEX [Suspect]
     Indication: IMMUNODEFICIENCY COMMON VARIABLE
     Dosage: 40 GM; Q3W; IV
     Route: 042
     Dates: start: 20070408
  2. MORPHINE (CON.) [Concomitant]
  3. PROMETHAZINE (CON.) [Concomitant]
  4. METHOCARBAMOL (CON.) [Concomitant]
  5. ALPRZOLAM (CON.) [Concomitant]
  6. PHENYTEK /00017402/(CON.) [Concomitant]
  7. KEEPRA (CON.) [Concomitant]
  8. TEMAZEPAM (CON.) [Concomitant]
  9. OXYCODONE/APAP (CON.) [Concomitant]
  10. ADVAIR (CON.) [Concomitant]
  11. ALBUTEROL /00139501/ (CON.) [Concomitant]
  12. BABY ASPIRIN (CON.) [Concomitant]
  13. ALLEGRA /01314202/ (CON.) [Concomitant]
  14. SERTRALINE (CON.) [Concomitant]
  15. FLONASE (CON.) [Concomitant]
  16. VARIOUS EYE DROPS (CON.) [Concomitant]
  17. BENADRYL /01563701/ (CON.) [Concomitant]
  18. OTOLOGICALS (CON.) [Concomitant]

REACTIONS (5)
  - DYSPNOEA [None]
  - INFLUENZA LIKE ILLNESS [None]
  - MALAISE [None]
  - STOMACH DISCOMFORT [None]
  - SWELLING FACE [None]
